FAERS Safety Report 5277600-2 (Version None)
Quarter: 2007Q1

REPORT INFORMATION
  Report Type: 
  Country: None (occurrence: None)
  Receive Date: 20070327
  Receipt Date: 20070315
  Transmission Date: 20070707
  Serious: Yes (Other)
  Sender: FDA-Public Use
  Company Number: JP-SANOFI-SYNTHELABO-A01200702003

PATIENT
  Sex: Female
  Weight: 45 kg

DRUGS (5)
  1. ISOVORIN [Concomitant]
     Route: 041
     Dates: start: 20070115, end: 20070116
  2. DECADRON [Concomitant]
     Indication: PREMEDICATION
     Route: 042
     Dates: start: 20061127, end: 20070115
  3. NASEA [Concomitant]
     Indication: PREMEDICATION
     Route: 042
     Dates: start: 20061127, end: 20070115
  4. FLUOROURACIL [Suspect]
     Indication: COLON CANCER
     Dosage: 500 MG/BODY=370.4 MG/M2 IN BOLUS THEN 2500 MG/BODY=1851.9 MG/M2 AS INFUSION
     Route: 041
     Dates: start: 20070115, end: 20070116
  5. OXALIPLATIN [Suspect]
     Indication: COLON CANCER
     Route: 041
     Dates: start: 20070115, end: 20070115

REACTIONS (1)
  - CARDIAC FAILURE [None]
